FAERS Safety Report 4752282-4 (Version None)
Quarter: 2005Q3

REPORT INFORMATION
  Report Type: 
  Country: None (occurrence: None)
  Receive Date: 20050825
  Receipt Date: 20050418
  Transmission Date: 20060218
  Serious: Yes (Other)
  Sender: FDA-Public Use
  Company Number: DE-GLAXOSMITHKLINE-B0378937A

PATIENT
  Age: 14 Year
  Sex: Female
  Weight: 74 kg

DRUGS (5)
  1. NYTOL EXTRA STRENGTH [Suspect]
     Dosage: 50MG UNKNOWN
     Route: 048
     Dates: start: 20050415, end: 20050415
  2. CYSTO FINK MONO [Suspect]
     Route: 048
     Dates: start: 20050415, end: 20050415
  3. TALVOSILEN FORTE [Suspect]
     Route: 048
     Dates: start: 20050415, end: 20050415
  4. DOLOMO TN [Suspect]
     Route: 048
     Dates: start: 20050415, end: 20050415
  5. LEFAX [Suspect]
     Route: 048
     Dates: start: 20050415, end: 20050415

REACTIONS (1)
  - SUICIDE ATTEMPT [None]
